FAERS Safety Report 5394153-9 (Version None)
Quarter: 2007Q3

REPORT INFORMATION
  Report Type: 
  Country: None (occurrence: None)
  Receive Date: 20070723
  Receipt Date: 20070713
  Transmission Date: 20080115
  Serious: Yes (Other)
  Sender: FDA-Public Use
  Company Number: BR-ROCHE-507379

PATIENT
  Age: 16 Year
  Sex: Female
  Weight: 55 kg

DRUGS (2)
  1. ISOTRETINOIN [Suspect]
     Indication: ACNE
     Dosage: THERAPY START DATE STATED AS END OF JUNE OR BEGGINNING OF JULY.
     Route: 048
     Dates: start: 20070625, end: 20070712
  2. ISOTRETINOIN [Suspect]
     Route: 048
     Dates: start: 20040101, end: 20040101

REACTIONS (2)
  - NO ADVERSE REACTION [None]
  - PREGNANCY [None]
